FAERS Safety Report 5923187-8 (Version None)
Quarter: 2008Q4

REPORT INFORMATION
  Report Type: 
  Country: None (occurrence: None)
  Receive Date: 20081020
  Receipt Date: 20081009
  Transmission Date: 20090506
  Serious: Yes (Death, Other)
  Sender: FDA-Public Use
  Company Number: JP-JNJFOC-20080900032

PATIENT
  Sex: Male

DRUGS (17)
  1. CRAVIT [Suspect]
     Route: 048
  2. CRAVIT [Suspect]
     Indication: POST PROCEDURAL INFECTION
     Route: 048
  3. FERROMIA [Concomitant]
     Indication: ANAEMIA
     Route: 048
  4. SENEVACUL [Concomitant]
     Indication: CONSTIPATION
     Dosage: 2 DP
     Route: 048
  5. LANSOPRAZOLE [Concomitant]
     Indication: GASTRIC ULCER
     Route: 048
  6. ANCARON [Concomitant]
     Indication: ARRHYTHMIA
     Route: 048
  7. ASPIRIN [Concomitant]
     Indication: THROMBOSIS PROPHYLAXIS
     Route: 065
  8. PLAVIX [Concomitant]
     Indication: MYOCARDIAL INFARCTION
     Route: 048
  9. LIPITOR [Concomitant]
     Indication: HYPERLIPIDAEMIA
     Route: 048
  10. URSO 250 [Concomitant]
     Indication: CHOLESTASIS
     Route: 048
  11. STRONG NEO-MINOPHAGEN C [Concomitant]
     Indication: HEPATIC CIRRHOSIS
     Route: 042
  12. SEVOFLURANE [Concomitant]
     Indication: COLON CANCER
     Route: 030
  13. PROPOFOL [Concomitant]
     Indication: COLON CANCER
     Route: 042
  14. FENTANYL CITRATE [Concomitant]
     Route: 042
  15. ATROPINE [Concomitant]
     Indication: COLON CANCER
     Route: 042
  16. EPHEDRIN [Concomitant]
     Indication: COLON CANCER
     Route: 042
  17. CIPROFLOXACIN HCL [Concomitant]
     Indication: POST PROCEDURAL INFECTION
     Route: 042

REACTIONS (2)
  - HYPOGLYCAEMIA [None]
  - MYOCARDIAL INFARCTION [None]
